FAERS Safety Report 9721993 (Version 3)
Quarter: 2014Q1

REPORT INFORMATION
  Report Type: Report from Study
  Country: CA (occurrence: CA)
  Receive Date: 20131202
  Receipt Date: 20140106
  Transmission Date: 20141002
  Serious: Yes (Other)
  Sender: FDA-Public Use
  Company Number: CA-ROCHE-1137392

PATIENT
  Age: 44 Year
  Sex: Male
  Weight: 197.7 kg

DRUGS (19)
  1. RITUXAN [Suspect]
     Indication: GRANULOMATOSIS WITH POLYANGIITIS
     Route: 042
     Dates: start: 20101215, end: 20120222
  2. RITUXAN [Suspect]
     Route: 042
     Dates: start: 20130115, end: 20130205
  3. PANTOLOC [Concomitant]
  4. MEDROL [Concomitant]
  5. VITAMIN B12 [Concomitant]
  6. FUROSEMIDE [Concomitant]
  7. METFORMIN [Concomitant]
  8. METHOTREXATE [Concomitant]
  9. VITAMIN A [Concomitant]
  10. BENADRYL (CANADA) [Concomitant]
     Indication: PREMEDICATION
     Route: 048
     Dates: start: 20101215
  11. ACETAMINOPHEN [Concomitant]
     Indication: PREMEDICATION
     Route: 048
     Dates: start: 20101215
  12. METHYLPREDNISOLONE [Concomitant]
     Indication: PREMEDICATION
     Route: 042
     Dates: start: 20101215
  13. SEPTRA [Concomitant]
     Indication: PROPHYLAXIS
  14. POTASSIUM CHLORIDE [Concomitant]
  15. JANUVIA [Concomitant]
  16. GLICLAZIDE [Concomitant]
  17. LEUCOVORIN [Concomitant]
  18. ACTONEL [Concomitant]
  19. TYLENOL #1 (CANADA) [Concomitant]
     Route: 048
     Dates: start: 20101215

REACTIONS (6)
  - Blood cholesterol abnormal [Unknown]
  - Skin ulcer [Recovered/Resolved]
  - Blood pressure increased [Unknown]
  - Weight decreased [Unknown]
  - Oral pruritus [Recovered/Resolved]
  - Hypotension [Unknown]
